FAERS Safety Report 5593276-9 (Version None)
Quarter: 2008Q1

REPORT INFORMATION
  Report Type: 
  Country: None (occurrence: None)
  Receive Date: 20080116
  Receipt Date: 20071213
  Transmission Date: 20080703
  Serious: Yes (Hospitalization)
  Sender: FDA-Public Use
  Company Number: ES-BAYER-200718168GPV

PATIENT
  Age: 69 Year
  Sex: Male

DRUGS (3)
  1. ADIRO 100 MG/ASA [Interacting]
     Indication: DRUG USE FOR UNKNOWN INDICATION
     Route: 048
     Dates: start: 20060101, end: 20061022
  2. IBUPROFEN [Interacting]
     Indication: DRUG USE FOR UNKNOWN INDICATION
     Route: 048
     Dates: start: 20061017, end: 20061022
  3. PLAVIX [Suspect]
     Indication: DRUG USE FOR UNKNOWN INDICATION
     Route: 048
     Dates: start: 20060101, end: 20061022

REACTIONS (1)
  - GASTRITIS EROSIVE [None]
